FAERS Safety Report 5801098-6 (Version None)
Quarter: 2008Q3

REPORT INFORMATION
  Report Type: 
  Country: None (occurrence: None)
  Receive Date: 20080707
  Receipt Date: 20080626
  Transmission Date: 20090109
  Serious: Yes (Other)
  Sender: FDA-Public Use
  Company Number: US-BRISTOL-MYERS SQUIBB COMPANY-14250286

PATIENT
  Age: 45 Year
  Sex: Male

DRUGS (5)
  1. SINEMET [Suspect]
     Route: 065
  2. SINEMET CR [Suspect]
     Indication: DYSTONIA
     Dosage: 1 DOSAGE FORM = 25/100MG
     Route: 048
  3. AMANTADINE HCL [Concomitant]
  4. ENTACAPONE [Concomitant]
  5. PRAMIPEXOLE HCL [Concomitant]

REACTIONS (9)
  - BRADYKINESIA [None]
  - DRUG EFFECT DECREASED [None]
  - DYSTONIA [None]
  - FOOT DEFORMITY [None]
  - FOOT FRACTURE [None]
  - GAIT DISTURBANCE [None]
  - MUSCLE RIGIDITY [None]
  - PAIN IN EXTREMITY [None]
  - TREMOR [None]
